FAERS Safety Report 5392905-2 (Version None)
Quarter: 2007Q3

REPORT INFORMATION
  Report Type: 
  Country: None (occurrence: None)
  Receive Date: 20070718
  Receipt Date: 20070705
  Transmission Date: 20080115
  Serious: Yes (Hospitalization)
  Sender: FDA-Public Use
  Company Number: GRT 2007-12650

PATIENT
  Age: 72 Year
  Sex: Female
  Weight: 80 kg

DRUGS (1)
  1. LIDOCAINE [Suspect]
     Indication: NEURALGIA
     Dosage: 3 PATCHES A DAY
     Dates: start: 20070612, end: 20070627

REACTIONS (2)
  - ANAEMIA [None]
  - RHABDOMYOLYSIS [None]
